FAERS Safety Report 8560472-8 (Version None)
Quarter: 2012Q3

REPORT INFORMATION
  Report Type: 
  Country: None (occurrence: None)
  Receive Date: 20120723
  Receipt Date: 20120713
  Transmission Date: 20120928
  Serious: Yes (Other)
  Sender: FDA-Public Use
  Company Number: ABR_00563_2012

PATIENT
  Age: 30 Year
  Sex: Female

DRUGS (3)
  1. CEFAZOLIN [Concomitant]
  2. ERYTHROMYCIN [Suspect]
     Indication: PRODUCT USED FOR UNKNOWN INDICATION
     Dosage: (400 MG UNKNOWN)
  3. RITODRINE HYDROCHLORIDE (UNKNOWN) [Concomitant]

REACTIONS (4)
  - MATERNAL EXPOSURE DURING PREGNANCY [None]
  - SEPSIS [None]
  - ESCHERICHIA INFECTION [None]
  - CAESAREAN SECTION [None]
